FAERS Safety Report 10146454 (Version 1)
Quarter: 2014Q2

REPORT INFORMATION
  Report Type: Spontaneous
  Country: GB (occurrence: GB)
  Receive Date: 20140501
  Receipt Date: 20140501
  Transmission Date: 20141212
  Serious: Yes (Other)
  Sender: FDA-Public Use
  Company Number: GB-B.I. PHARMACEUTICALS,INC./RIDGEFIELD-2014-BI-19129UK

PATIENT
  Age: 69 Year
  Sex: Male

DRUGS (9)
  1. PRADAXA [Suspect]
     Indication: CEREBROVASCULAR ACCIDENT PROPHYLAXIS
     Dosage: 300 MG
     Route: 065
  2. PRADAXA [Suspect]
     Indication: ATRIAL FIBRILLATION
  3. DILTIAZEM [Concomitant]
     Route: 065
  4. OMEPRAZOLE [Concomitant]
     Route: 065
  5. NICORANDIL [Concomitant]
     Dosage: 40 MG
     Route: 065
  6. LOSARTAN [Concomitant]
     Route: 065
  7. FUROSEMIDE [Concomitant]
     Dosage: 40 MG
     Route: 065
  8. ISOSORBITE [Concomitant]
     Dosage: 60 MG
     Route: 065
  9. METFORMIN [Concomitant]
     Dosage: 1000 MG
     Route: 065

REACTIONS (1)
  - Cerebrovascular accident [Not Recovered/Not Resolved]
